FAERS Safety Report 12936820 (Version 5)
Quarter: 2018Q2

REPORT INFORMATION
  Report Type: Spontaneous
  Country: CN (occurrence: CN)
  Receive Date: 20161114
  Receipt Date: 20180612
  Transmission Date: 20180711
  Serious: Yes (Death, Other)
  Sender: FDA-Public Use
  Company Number: ALCN2016CN007688

PATIENT
  Age: 57 Year
  Sex: Female
  Weight: 59 kg

DRUGS (1)
  1. FLUORESCITE [Suspect]
     Active Substance: FLUORESCEIN SODIUM
     Indication: ANGIOGRAM RETINA
     Dosage: 5 ML, UNK
     Route: 042
     Dates: start: 20161109, end: 20161109

REACTIONS (21)
  - Hypoxia [Unknown]
  - Dysarthria [Unknown]
  - Breath sounds abnormal [Unknown]
  - Heart rate decreased [Unknown]
  - Heart rate increased [Unknown]
  - Discomfort [Fatal]
  - Anaphylactic shock [Fatal]
  - Pulmonary oedema [Unknown]
  - Aspiration [Unknown]
  - Dysstasia [Unknown]
  - Dyspnoea [Unknown]
  - Urinary incontinence [Unknown]
  - Feeling abnormal [Unknown]
  - Nail discolouration [Unknown]
  - Confusional state [Unknown]
  - Cough [Unknown]
  - Cyanosis [Fatal]
  - Blood pressure immeasurable [Fatal]
  - Respiratory failure [Unknown]
  - Foaming at mouth [Unknown]
  - Mydriasis [Unknown]

NARRATIVE: CASE EVENT DATE: 20161109
